FAERS Safety Report 7331096-5 (Version None)
Quarter: 2011Q1

REPORT INFORMATION
  Report Type: 
  Country: None (occurrence: None)
  Receive Date: 20110304
  Receipt Date: 20110207
  Transmission Date: 20110831
  Serious: No
  Sender: FDA-Public Use
  Company Number: US-B.I. PHARMACEUTICALS,INC./RIDGEFIELD-2011-BP-03833BP

PATIENT
  Age: 85 Year
  Sex: Female

DRUGS (4)
  1. PRAVASTATIN [Concomitant]
     Indication: BLOOD CHOLESTEROL INCREASED
     Dosage: 40 MG
     Route: 048
  2. CARVEDILOL [Concomitant]
     Indication: HYPERTENSION
     Dosage: 6.25 MG
     Route: 048
  3. LISINOPRIL [Concomitant]
     Indication: HYPERTENSION
     Dosage: 5 MG
     Route: 048
  4. PRADAXA [Suspect]
     Indication: ATRIAL FIBRILLATION
     Dosage: 300 MG
     Route: 048
     Dates: start: 20110101

REACTIONS (8)
  - DIARRHOEA [None]
  - CONTUSION [None]
  - ABDOMINAL DISCOMFORT [None]
  - FAECAL INCONTINENCE [None]
  - PRURITUS [None]
  - ANORECTAL DISCOMFORT [None]
  - FLATULENCE [None]
  - NAUSEA [None]
